FAERS Safety Report 20534542 (Version 5)
Quarter: 2024Q1

REPORT INFORMATION
  Report Type: Spontaneous
  Country: US (occurrence: US)
  Receive Date: 20220302
  Receipt Date: 20240321
  Transmission Date: 20240410
  Serious: Yes (Hospitalization, Other)
  Sender: FDA-Public Use
  Company Number: US-ROCHE-2537011

PATIENT
  Sex: Female
  Weight: 60.919 kg

DRUGS (46)
  1. CLONAZEPAM [Suspect]
     Active Substance: CLONAZEPAM
     Indication: Product used for unknown indication
     Dosage: 1 MG, BID
     Route: 048
  2. XOLAIR [Suspect]
     Active Substance: OMALIZUMAB
     Indication: Asthma
     Dosage: 150 MG, Q2WEEKS
     Route: 058
     Dates: start: 2003
  3. XOLAIR [Suspect]
     Active Substance: OMALIZUMAB
     Indication: Giant cell arteritis
     Dosage: 150 MG, Q2WEEKS
     Route: 058
     Dates: start: 2003
  4. XOLAIR [Suspect]
     Active Substance: OMALIZUMAB
     Indication: Polymyalgia rheumatica
     Dosage: 150 MG, Q2WEEKS
     Route: 058
     Dates: start: 2003
  5. XOLAIR [Suspect]
     Active Substance: OMALIZUMAB
     Indication: Asthma
     Dosage: 450 MG, Q2WEEKS (ABOUT 17 YEARS AGO)
     Route: 058
  6. XOLAIR [Suspect]
     Active Substance: OMALIZUMAB
     Indication: Giant cell arteritis
     Dosage: 450 MG, Q2WEEKS (ABOUT 17 YEARS AGO)
     Route: 058
  7. XOLAIR [Suspect]
     Active Substance: OMALIZUMAB
     Indication: Polymyalgia rheumatica
     Dosage: 450 MG, Q2WEEKS (ABOUT 17 YEARS AGO)
     Route: 058
  8. XOLAIR [Suspect]
     Active Substance: OMALIZUMAB
     Indication: Asthma
     Dosage: 150 MG, Q3WEEKS
     Route: 058
  9. XOLAIR [Suspect]
     Active Substance: OMALIZUMAB
     Indication: Giant cell arteritis
     Dosage: 150 MG, Q3WEEKS
     Route: 058
  10. XOLAIR [Suspect]
     Active Substance: OMALIZUMAB
     Indication: Polymyalgia rheumatica
     Dosage: 150 MG, Q3WEEKS
     Route: 058
  11. XOLAIR [Suspect]
     Active Substance: OMALIZUMAB
     Indication: Asthma
     Dosage: UNK
     Route: 058
  12. XOLAIR [Suspect]
     Active Substance: OMALIZUMAB
     Indication: Giant cell arteritis
     Dosage: UNK
     Route: 058
  13. XOLAIR [Suspect]
     Active Substance: OMALIZUMAB
     Indication: Polymyalgia rheumatica
     Dosage: UNK
     Route: 058
  14. XOLAIR [Suspect]
     Active Substance: OMALIZUMAB
     Indication: Asthma
     Dosage: 150 MG, Q2WEEKS (INJECT 150MG SUBCUTANEOUSLY EVERY 14 DAY(S)
     Route: 058
  15. XOLAIR [Suspect]
     Active Substance: OMALIZUMAB
     Indication: Giant cell arteritis
     Dosage: 150 MG, Q2WEEKS (INJECT 150MG SUBCUTANEOUSLY EVERY 14 DAY(S)
     Route: 058
  16. XOLAIR [Suspect]
     Active Substance: OMALIZUMAB
     Indication: Polymyalgia rheumatica
     Dosage: 150 MG, Q2WEEKS (INJECT 150MG SUBCUTANEOUSLY EVERY 14 DAY(S)
     Route: 058
  17. ACTEMRA [Suspect]
     Active Substance: TOCILIZUMAB
     Indication: Polymyalgia rheumatica
     Dosage: 162 MG (EVERY WEEK) (0.9 ML)
     Route: 058
     Dates: start: 201912
  18. ACTEMRA [Suspect]
     Active Substance: TOCILIZUMAB
     Indication: Giant cell arteritis
     Dosage: 162 MG (EVERY WEEK) (0.9 ML)
     Route: 058
     Dates: start: 201912
  19. ACTEMRA [Suspect]
     Active Substance: TOCILIZUMAB
     Indication: Polymyalgia rheumatica
     Dosage: 162 MG (EVERY WEEK) (0.9 ML)
     Route: 058
     Dates: start: 201912
  20. ACTEMRA [Suspect]
     Active Substance: TOCILIZUMAB
     Indication: Giant cell arteritis
     Dosage: 162 MG (EVERY WEEK) (0.9 ML)
     Route: 058
     Dates: start: 201912
  21. ACTEMRA [Suspect]
     Active Substance: TOCILIZUMAB
     Indication: Polymyalgia rheumatica
     Dosage: UNK
     Route: 058
  22. ACTEMRA [Suspect]
     Active Substance: TOCILIZUMAB
     Indication: Giant cell arteritis
     Dosage: UNK
     Route: 058
  23. ACTEMRA [Suspect]
     Active Substance: TOCILIZUMAB
     Indication: Polymyalgia rheumatica
     Dosage: UNK
     Route: 058
  24. ACTEMRA [Suspect]
     Active Substance: TOCILIZUMAB
     Indication: Giant cell arteritis
     Dosage: UNK
     Route: 058
  25. MEMANTINE [Suspect]
     Active Substance: MEMANTINE
     Dosage: UNK
  26. NAMENDA XR [Suspect]
     Active Substance: MEMANTINE HYDROCHLORIDE
     Dosage: 1 DF, DAILY
     Route: 048
  27. METOPROLOL [Concomitant]
     Active Substance: METOPROLOL
  28. SYNTHROID [Concomitant]
     Active Substance: LEVOTHYROXINE SODIUM
     Dosage: 50 UG, DAILY
     Route: 048
  29. LUTEIN [Concomitant]
     Active Substance: LUTEIN
     Dosage: 1 DF, BID
     Route: 048
  30. MONTELUKAST [Concomitant]
     Active Substance: MONTELUKAST SODIUM
     Dosage: UNK
  31. ACETAMINOPHEN\HYDROCODONE [Concomitant]
     Active Substance: ACETAMINOPHEN\HYDROCODONE
     Dosage: 10-325, 1 TO 2 EVERY 4 TO 6 HOURS TAKES EVERY DAY
     Route: 048
  32. BRIMONIDINE TARTRATE [Concomitant]
     Active Substance: BRIMONIDINE TARTRATE
     Indication: Macular degeneration
     Dosage: 1 DF, BID
  33. MINERALS\VITAMINS [Concomitant]
     Active Substance: MINERALS\VITAMINS
     Dosage: UNK
  34. LATANOPROST [Concomitant]
     Active Substance: LATANOPROST
     Route: 047
  35. PREVIDENT 5000 BOOSTER [Concomitant]
     Active Substance: SODIUM FLUORIDE
     Dosage: UNK
  36. PROAIR HFA [Concomitant]
     Active Substance: ALBUTEROL SULFATE
     Dosage: UNK
  37. VENTOLIN [Concomitant]
     Active Substance: ALBUTEROL SULFATE
     Dosage: UNK
  38. ADVAIR HFA [Concomitant]
     Active Substance: FLUTICASONE PROPIONATE\SALMETEROL XINAFOATE
     Dosage: UNK
  39. PREDNISONE [Concomitant]
     Active Substance: PREDNISONE
     Indication: Giant cell arteritis
     Route: 048
     Dates: start: 201911
  40. PREDNISONE [Concomitant]
     Active Substance: PREDNISONE
     Indication: Giant cell arteritis
     Route: 048
     Dates: start: 20200214, end: 20200304
  41. PREDNISONE [Concomitant]
     Active Substance: PREDNISONE
     Indication: Giant cell arteritis
     Route: 048
     Dates: start: 20200304
  42. FENTANYL [Concomitant]
     Active Substance: FENTANYL\FENTANYL CITRATE
  43. COLACE [Concomitant]
     Active Substance: DOCUSATE SODIUM
     Route: 048
  44. VOLTAREN [Concomitant]
     Active Substance: DICLOFENAC SODIUM
     Dates: start: 20150825
  45. PROLIA [Concomitant]
     Active Substance: DENOSUMAB
     Dosage: 60 MG/ML SYRINGE
     Route: 058
  46. ZOLOFT [Concomitant]
     Active Substance: SERTRALINE HYDROCHLORIDE
     Route: 048

REACTIONS (31)
  - Vocal cord paralysis [Unknown]
  - Neuropathy peripheral [Not Recovered/Not Resolved]
  - Giant cell arteritis [Not Recovered/Not Resolved]
  - Blindness [Unknown]
  - Hypoacusis [Unknown]
  - Illness [Not Recovered/Not Resolved]
  - Macular degeneration [Not Recovered/Not Resolved]
  - Glaucoma [Not Recovered/Not Resolved]
  - Auditory disorder [Not Recovered/Not Resolved]
  - Nasopharyngitis [Recovering/Resolving]
  - Dysphonia [Not Recovered/Not Resolved]
  - Body height decreased [Not Recovered/Not Resolved]
  - Lower respiratory tract infection [Unknown]
  - Rhinorrhoea [Not Recovered/Not Resolved]
  - Hearing aid user [Unknown]
  - Alopecia [Unknown]
  - Rash [Unknown]
  - Skin exfoliation [Unknown]
  - Migraine [Unknown]
  - Asthma [Unknown]
  - Weight increased [Unknown]
  - Productive cough [Unknown]
  - Dry eye [Unknown]
  - Nocturia [Unknown]
  - Depressed mood [Unknown]
  - Vision blurred [Unknown]
  - Urinary tract infection [Unknown]
  - COVID-19 [Unknown]
  - Hypocalcaemia [Unknown]
  - Oedema [Unknown]
  - Tachycardia [Unknown]

NARRATIVE: CASE EVENT DATE: 20130101
